FAERS Safety Report 5131138-1 (Version None)
Quarter: 2006Q3

REPORT INFORMATION
  Report Type: 
  Country: None (occurrence: None)
  Receive Date: 20060830
  Receipt Date: 20060516
  Transmission Date: 20061208
  Serious: Yes (Hospitalization)
  Sender: FDA-Public Use
  Company Number: CIP06000870

PATIENT
  Age: 75 Year
  Sex: Female

DRUGS (12)
  1. ASACOL [Suspect]
     Indication: COLITIS
     Dosage: 1200 MG TWICE DAILY, ORAL
     Route: 048
     Dates: start: 20060321, end: 20060101
  2. SPIRONOLACTONE [Concomitant]
  3. PROTONIX ^WYETH-AYERST^ (PANTOPRAZOLE SODIUM) [Concomitant]
  4. LEVOTHROID [Concomitant]
  5. SEROTONIN ANTAGONISTS [Concomitant]
  6. ASPIRIN [Concomitant]
  7. ASCORBIC ACID [Concomitant]
  8. VITAMIN E [Concomitant]
  9. VITAMIN B12 FOR INJECTION (CYANOCOBALAMIN) [Concomitant]
  10. GLYBURIDE [Concomitant]
  11. TIMOLOL MALEATE [Concomitant]
  12. MAGNESIUM OXIDE (MAGNESIUM OXIDE) [Concomitant]

REACTIONS (14)
  - ABDOMINAL PAIN [None]
  - ASTHENIA [None]
  - BONE DENSITY INCREASED [None]
  - CONDITION AGGRAVATED [None]
  - DEHYDRATION [None]
  - DIARRHOEA [None]
  - DIVERTICULUM INTESTINAL [None]
  - EPSTEIN-BARR VIRUS ANTIBODY POSITIVE [None]
  - GASTROINTESTINAL INFLAMMATION [None]
  - HIATUS HERNIA [None]
  - HYPOTENSION [None]
  - PYREXIA [None]
  - THROMBOCYTOPENIA [None]
  - VIRAL INFECTION [None]
